FAERS Safety Report 7231849-8 (Version None)
Quarter: 2011Q1

REPORT INFORMATION
  Report Type: 
  Country: None (occurrence: None)
  Receive Date: 20110118
  Receipt Date: 20110110
  Transmission Date: 20110831
  Serious: Yes (Hospitalization, Other)
  Sender: FDA-Public Use
  Company Number: PHEH2005US10680

PATIENT

DRUGS (64)
  1. EFFEXOR [Concomitant]
     Indication: DEPRESSION
     Dosage: 37.5 MG, BID ONGOING AS OF 2003 (NOT SPEC.)
     Route: 048
     Dates: start: 20021001
  2. INFLUENZA VACCINE [Concomitant]
  3. PROCHLORPERAZINE [Concomitant]
  4. ATIVAN [Concomitant]
  5. ZOFRAN [Concomitant]
  6. FLOMAX [Concomitant]
  7. TAXOTERE [Concomitant]
     Dosage: 80 MG, QW
     Route: 042
     Dates: start: 20020109, end: 20030101
  8. ROCALTROL [Concomitant]
     Indication: OSTEOPOROSIS
     Dosage: UNK, QD
     Route: 048
     Dates: start: 20030226
  9. NEXIUM [Concomitant]
  10. IPRATROPIUM BROMIDE [Concomitant]
  11. GLYCOLAX [Concomitant]
  12. AMOXICILLIN [Concomitant]
  13. HYDROCODONE BITARTRATE AND ACETAMINOPHEN [Concomitant]
  14. XANAX [Concomitant]
  15. PRAMIPEXOLE DIHYDROCHLORIDE [Concomitant]
  16. TYLENOL PM [Concomitant]
  17. OXYCONTIN [Concomitant]
  18. ZITHROMAX [Concomitant]
  19. ZOLPIDEM [Concomitant]
  20. CYMBALTA [Concomitant]
  21. OXYGEN THERAPY [Concomitant]
  22. HYDROCORTISONE [Concomitant]
  23. COMPAZINE [Concomitant]
  24. AMBIEN [Concomitant]
     Indication: SLEEP DISORDER
     Dosage: ONGOING AS OF 2003 (NO DATE SPECIFIED)
     Dates: start: 20021001, end: 20030201
  25. SENOKOT /USA/ [Concomitant]
     Dosage: ONGOINGAS OF 2003 (NO DATE SPECIFIED)
     Dates: start: 20021001
  26. SODIUM FLUORIDE [Concomitant]
  27. SUCRALFATE [Concomitant]
  28. TRAZODONE [Concomitant]
  29. CALCITRIOL [Concomitant]
  30. KETOCONAZOLE [Concomitant]
  31. LOVENOX [Concomitant]
  32. AZELASTINE HCL [Concomitant]
  33. MS CONTIN [Concomitant]
     Indication: BACK PAIN
     Dosage: ONGOING AS OF 2003 (NO DATE SPECIFIED)
     Dates: start: 20021001
  34. CALCITRIOL [Concomitant]
  35. MORPHINE SULFATE [Concomitant]
  36. TEMAZEPAM [Concomitant]
  37. HUMIBID [Concomitant]
  38. DEXAMETHASONE [Concomitant]
  39. SPIRIVA [Concomitant]
  40. SYMBICORT [Concomitant]
  41. ZOMETA [Suspect]
     Indication: METASTASES TO BONE
     Dosage: 4 MG EVERY MONTH
     Dates: start: 20021125, end: 20040225
  42. HORMONES [Concomitant]
  43. VICODIN [Concomitant]
     Indication: PAIN
     Dosage: UNK, PRN
  44. CARDURA /JOR/ [Concomitant]
     Dosage: 4 MG, BID ONGOING AS OF OCTOBER 2003
     Route: 048
     Dates: start: 20021001
  45. ARTHROTEC [Concomitant]
  46. MUCINEX [Concomitant]
  47. FLUCONAZOLE [Concomitant]
  48. TAMOXIFEN [Concomitant]
  49. NEULASTA [Concomitant]
  50. PROSCAR [Concomitant]
     Dates: start: 20030716
  51. DECADRON /NET/ [Concomitant]
     Dosage: 8 MG, QMO
     Route: 042
     Dates: start: 20020116
  52. RADIATION THERAPY [Concomitant]
  53. LORAZEPAM [Concomitant]
  54. WELLBUTRIN [Concomitant]
  55. NILANDRON [Concomitant]
  56. CEFPODOXIME PROXETIL [Concomitant]
  57. FLONASE [Concomitant]
  58. LUPRON [Concomitant]
     Indication: PROSTATE CANCER
     Dosage: 4 MG, QW
     Route: 030
     Dates: start: 20030326
  59. CASODEX [Concomitant]
     Indication: PROSTATE CANCER
     Dosage: 50 MG, QD ONGOING AS OF OCTOBER 2003
     Route: 048
     Dates: start: 20021001
  60. DURAGESIC-100 [Concomitant]
     Indication: BACK PAIN
     Dosage: PRN
     Route: 062
     Dates: start: 20021001, end: 20030101
  61. MELATONIN [Concomitant]
     Dosage: ONGOING AS OF 2003 (NO DATE SPECIFIED)
     Dates: start: 20021001
  62. ANZEMET [Concomitant]
     Dosage: 100 MG, QMO
     Route: 042
     Dates: start: 20020116
  63. DIAZEPAM [Concomitant]
  64. TRIPTORELIN [Concomitant]

REACTIONS (73)
  - MOUTH ULCERATION [None]
  - CANDIDIASIS [None]
  - DYSPNOEA EXERTIONAL [None]
  - LARYNGOSPASM [None]
  - NASAL CONGESTION [None]
  - UPPER RESPIRATORY TRACT INFECTION [None]
  - HOT FLUSH [None]
  - RECTAL HAEMORRHAGE [None]
  - TENOSYNOVITIS [None]
  - OSTEOARTHRITIS [None]
  - TOOTH DISORDER [None]
  - GINGIVAL SWELLING [None]
  - BONE PAIN [None]
  - GINGIVAL PAIN [None]
  - DENTURE WEARER [None]
  - CHRONIC OBSTRUCTIVE PULMONARY DISEASE [None]
  - PARAESTHESIA [None]
  - BLOOD CHOLESTEROL INCREASED [None]
  - INTERVERTEBRAL DISC PROTRUSION [None]
  - DEEP VEIN THROMBOSIS [None]
  - TONGUE INJURY [None]
  - CHOKING [None]
  - DYSPHONIA [None]
  - ANDROGENS ABNORMAL [None]
  - BACK PAIN [None]
  - ARTHRALGIA [None]
  - NASAL DISORDER [None]
  - LOOSE TOOTH [None]
  - TOOTHACHE [None]
  - DYSGEUSIA [None]
  - TONGUE BITING [None]
  - WHEEZING [None]
  - COUGH [None]
  - HYPOXIA [None]
  - TREMOR [None]
  - LYMPHOPROLIFERATIVE DISORDER [None]
  - RECTAL FISSURE [None]
  - WEIGHT DECREASED [None]
  - TOOTH INFECTION [None]
  - LYMPHADENOPATHY [None]
  - IMPAIRED HEALING [None]
  - ORAL DISCOMFORT [None]
  - PNEUMONIA [None]
  - PLEURITIC PAIN [None]
  - DEPRESSION [None]
  - CHILLS [None]
  - GASTROENTERITIS SALMONELLA [None]
  - LUMBAR SPINAL STENOSIS [None]
  - BONE DISORDER [None]
  - JAW DISORDER [None]
  - HYPERAEMIA [None]
  - PAIN [None]
  - LOW DENSITY LIPOPROTEIN INCREASED [None]
  - OSTEONECROSIS OF JAW [None]
  - DYSPNOEA [None]
  - OROPHARYNGEAL PAIN [None]
  - PYREXIA [None]
  - ASTHENIA [None]
  - CONSTIPATION [None]
  - DIVERTICULUM [None]
  - BREAST ENLARGEMENT [None]
  - JOINT EFFUSION [None]
  - METASTASIS [None]
  - PULMONARY EMBOLISM [None]
  - FEBRILE NEUTROPENIA [None]
  - DENTAL CARIES [None]
  - HAEMOPTYSIS [None]
  - FATIGUE [None]
  - INTERVERTEBRAL DISC DISORDER [None]
  - LUNG NEOPLASM [None]
  - DEAFNESS [None]
  - ANXIETY [None]
  - DRY EYE [None]
